FAERS Safety Report 12431789 (Version 1)
Quarter: 2016Q2

REPORT INFORMATION
  Report Type: Spontaneous
  Country: US (occurrence: US)
  Receive Date: 20160603
  Receipt Date: 20160603
  Transmission Date: 20160815
  Serious: No
  Sender: FDA-Public Use
  Company Number: US-SUN PHARMACEUTICAL INDUSTRIES LTD-2015SUN01865

PATIENT
  Age: 20 Year
  Sex: Female

DRUGS (1)
  1. TECHNETIUM TC-99M SULFUR COLLOID KIT [Suspect]
     Active Substance: TECHNETIUM TC-99M SULFUR COLLOID
     Indication: GASTRIC EMPTYING STUDY
     Dosage: 472 ?CI, OD
     Route: 048
     Dates: start: 20150812, end: 20150812

REACTIONS (3)
  - Hypoaesthesia [Recovered/Resolved]
  - Hypotension [None]
  - Hypoaesthesia [None]

NARRATIVE: CASE EVENT DATE: 20150812
